FAERS Safety Report 16979792 (Version 1)
Quarter: 2019Q4

REPORT INFORMATION
  Report Type: Spontaneous
  Country: US (occurrence: US)
  Receive Date: 20191031
  Receipt Date: 20191031
  Transmission Date: 20200122
  Serious: Yes (Hospitalization)
  Sender: FDA-Public Use
  Company Number: US-JNJFOC-20191041475

PATIENT
  Age: 52 Year
  Sex: Male

DRUGS (2)
  1. INVOKANA [Suspect]
     Active Substance: CANAGLIFLOZIN
     Indication: TYPE 2 DIABETES MELLITUS
     Route: 048
     Dates: start: 20141024
  2. INVOKANA [Suspect]
     Active Substance: CANAGLIFLOZIN
     Route: 048

REACTIONS (6)
  - Osteomyelitis [Unknown]
  - Diabetic foot infection [Unknown]
  - Acute kidney injury [Unknown]
  - Sepsis [Recovering/Resolving]
  - Gas gangrene [Unknown]
  - Amputation [Unknown]

NARRATIVE: CASE EVENT DATE: 20130101
